FAERS Safety Report 9262364 (Version 1)
Quarter: 2013Q2

REPORT INFORMATION
  Report Type: Spontaneous
  Country: US (occurrence: None)
  Receive Date: 20130425
  Receipt Date: 20130425
  Transmission Date: 20140414
  Serious: Yes (Disabling)
  Sender: FDA-Public Use
  Company Number: None

PATIENT
  Age: 49 Year
  Sex: Female
  Weight: 102.06 kg

DRUGS (2)
  1. SARAPIN [Suspect]
     Indication: BACK PAIN
     Dosage: 2 CC IN FIVE AREAS LOWER BACK
     Route: 042
     Dates: start: 20110822, end: 20130222
  2. SARAPIN [Suspect]
     Indication: BURSITIS
     Dosage: 2 CC IN FIVE AREAS LOWER BACK
     Route: 042
     Dates: start: 20110822, end: 20130222

REACTIONS (8)
  - Furuncle [None]
  - Hypoaesthesia [None]
  - Hypoaesthesia [None]
  - Pain in extremity [None]
  - Soft tissue disorder [None]
  - Myalgia [None]
  - Muscular weakness [None]
  - Alopecia [None]
